FAERS Safety Report 8183710-2 (Version None)
Quarter: 2012Q1

REPORT INFORMATION
  Report Type: 
  Country: None (occurrence: None)
  Receive Date: 20120305
  Receipt Date: 20120228
  Transmission Date: 20120608
  Serious: Yes (Life-Threatening, Hospitalization, Other)
  Sender: FDA-Public Use
  Company Number: PHHY2012FR017336

PATIENT
  Sex: Male

DRUGS (9)
  1. FENOFIBRATE [Concomitant]
  2. PLAVIX [Concomitant]
  3. IMODIUM [Concomitant]
  4. AFINITOR [Suspect]
     Dosage: 5 MG, DAILY
     Route: 048
     Dates: end: 20120105
  5. AFINITOR [Suspect]
     Indication: RENAL CELL CARCINOMA
     Dosage: 10 MG, UNK
     Route: 048
     Dates: start: 20110301
  6. PHENOXYMETHYL PENICILLIN [Concomitant]
  7. OLMESARTAN MEDOXOMIL [Concomitant]
  8. BISOPROLOL FUMARATE [Concomitant]
  9. PRAVASTATIN [Concomitant]

REACTIONS (17)
  - ARTHRALGIA [None]
  - OEDEMA PERIPHERAL [None]
  - CARDIAC FAILURE CONGESTIVE [None]
  - RENAL FAILURE [None]
  - ATRIAL FIBRILLATION [None]
  - BRAIN NATRIURETIC PEPTIDE INCREASED [None]
  - MYALGIA [None]
  - FACE OEDEMA [None]
  - WEIGHT INCREASED [None]
  - GENERALISED OEDEMA [None]
  - COUGH [None]
  - EJECTION FRACTION DECREASED [None]
  - DIARRHOEA [None]
  - DYSPNOEA [None]
  - VENTRICULAR HYPOKINESIA [None]
  - HYPERTRIGLYCERIDAEMIA [None]
  - HYPERCHOLESTEROLAEMIA [None]
